FAERS Safety Report 4557327-2 (Version None)
Quarter: 2005Q1

REPORT INFORMATION
  Report Type: 
  Country: None (occurrence: None)
  Receive Date: 20050119
  Receipt Date: 20050119
  Transmission Date: 20050727
  Serious: Yes (Hospitalization)
  Sender: FDA-Public Use
  Company Number: None

PATIENT
  Sex: Male
  Weight: 92.5338 kg

DRUGS (2)
  1. GATIFLOXACIN [Suspect]
     Indication: UPPER RESPIRATORY TRACT INFECTION
     Dosage: 400MG   QD   ORAL
     Route: 048
     Dates: start: 20041230, end: 20050105
  2. GATIFLOXACIN [Suspect]
     Indication: URINARY TRACT INFECTION
     Dosage: 400MG   QD   ORAL
     Route: 048
     Dates: start: 20041230, end: 20050105

REACTIONS (1)
  - HYPERGLYCAEMIA [None]
